FAERS Safety Report 9032962 (Version 1)
Quarter: 2013Q1

REPORT INFORMATION
  Report Type: Report from Study
  Country: CA (occurrence: CA)
  Receive Date: 20130128
  Receipt Date: 20130128
  Transmission Date: 20140127
  Serious: Yes (Other)
  Sender: FDA-Public Use
  Company Number: CA-JNJFOC-20130109809

PATIENT
  Age: 82 Year
  Sex: Male
  Weight: 74 kg

DRUGS (14)
  1. REMICADE [Suspect]
     Indication: COLITIS ULCERATIVE
     Route: 042
     Dates: start: 20120906
  2. REMICADE [Suspect]
     Indication: COLITIS ULCERATIVE
     Route: 042
     Dates: start: 201211
  3. ALL OTHER THERAPEUTIC PRODUCT [Concomitant]
     Route: 065
  4. MEZAVANT [Concomitant]
     Route: 065
  5. METOPROLOL [Concomitant]
     Route: 065
  6. PRADAXA [Concomitant]
     Route: 065
  7. ELTROXIN [Concomitant]
     Route: 065
  8. ZOPICLONE [Concomitant]
     Route: 065
  9. SALOFALK [Concomitant]
     Route: 065
  10. VIT D [Concomitant]
     Route: 065
  11. CALCIUM [Concomitant]
     Route: 065
  12. METAMUCIL [Concomitant]
  13. BENADRYL [Concomitant]
     Indication: PREMEDICATION
     Route: 042
  14. SOLUCORTEF [Concomitant]
     Indication: PREMEDICATION
     Route: 042

REACTIONS (1)
  - Fall [Recovered/Resolved]
